FAERS Safety Report 19376975 (Version 7)
Quarter: 2022Q3

REPORT INFORMATION
  Report Type: Report from Study
  Country: US (occurrence: US)
  Receive Date: 20210604
  Receipt Date: 20220914
  Transmission Date: 20221027
  Serious: Yes (Hospitalization, Other)
  Sender: FDA-Public Use
  Company Number: US-NOVARTISTESTPH-NVSC2021US121610

PATIENT
  Age: 42 Year
  Sex: Male
  Weight: 127 kg

DRUGS (7)
  1. TREPROSTINIL [Suspect]
     Active Substance: TREPROSTINIL
     Indication: Pulmonary arterial hypertension
     Dosage: (23 NG/KG/MIN), CONT
     Route: 042
     Dates: start: 20210525
  2. TREPROSTINIL [Suspect]
     Active Substance: TREPROSTINIL
     Dosage: (27 NG/KG/MIN) CONT
     Route: 042
  3. TREPROSTINIL [Suspect]
     Active Substance: TREPROSTINIL
     Dosage: (33 NG/KG/MIN) CONT
     Route: 042
  4. TREPROSTINIL [Suspect]
     Active Substance: TREPROSTINIL
     Dosage: (33 NG/KG/MIN), CONT
     Route: 042
  5. TREPROSTINIL [Suspect]
     Active Substance: TREPROSTINIL
     Dosage: 23 NG/KG/MIN, CONT
     Route: 042
  6. OPSUMIT [Concomitant]
     Active Substance: MACITENTAN
     Indication: Product used for unknown indication
     Dosage: UNK
     Route: 065
  7. SILDENAFIL CITRATE [Concomitant]
     Active Substance: SILDENAFIL CITRATE
     Indication: Product used for unknown indication
     Dosage: UNK
     Route: 065

REACTIONS (6)
  - Renal failure [Unknown]
  - Pneumonia [Unknown]
  - Sensitive skin [Unknown]
  - Muscle spasms [Unknown]
  - Pain in jaw [Unknown]
  - Diarrhoea [Unknown]

NARRATIVE: CASE EVENT DATE: 20220903
